FAERS Safety Report 20906313 (Version 2)
Quarter: 2022Q2

REPORT INFORMATION
  Report Type: Spontaneous
  Country: US (occurrence: US)
  Receive Date: 20220602
  Receipt Date: 20220614
  Transmission Date: 20220721
  Serious: Yes (Hospitalization)
  Sender: FDA-Public Use
  Company Number: US-MYLANLABS-2022M1041380

PATIENT
  Age: 83 Year
  Sex: Female

DRUGS (7)
  1. OCTREOTIDE [Suspect]
     Active Substance: OCTREOTIDE
     Indication: Hyperinsulinaemic hypoglycaemia
     Dosage: 30 MILLIGRAM, MONTHLY, LONG ACTING RELEASE
     Route: 030
  2. OCTREOTIDE [Suspect]
     Active Substance: OCTREOTIDE
     Indication: Hyperinsulinaemic hypoglycaemia
     Dosage: 150 MICROGRAM, TID (THREE TIMES DAILY)
  3. OCTREOTIDE [Suspect]
     Active Substance: OCTREOTIDE
     Dosage: 500 MICROGRAM TID (IMMEDIATE RELEASE FORMULATION AT THREE TIMES A DAY)
  4. VERAPAMIL [Suspect]
     Active Substance: VERAPAMIL HYDROCHLORIDE
     Indication: Hyperinsulinaemic hypoglycaemia
     Dosage: 80 MILLIGRAM, QD
  5. DIAZOXIDE [Suspect]
     Active Substance: DIAZOXIDE
     Indication: Hyperinsulinaemic hypoglycaemia
     Dosage: 100 MILLIGRAM, TID (THREE TIMES DAILY)
  6. DIAZOXIDE [Suspect]
     Active Substance: DIAZOXIDE
     Dosage: 125 MILLIGRAM, TID (THREE TIMES DAILY)
  7. LEVOTHYROXINE [Concomitant]
     Active Substance: LEVOTHYROXINE
     Indication: Hypothyroidism
     Dosage: 50 MICROGRAM, QD

REACTIONS (2)
  - Drug ineffective for unapproved indication [Unknown]
  - Off label use [Unknown]
